FAERS Safety Report 9530600 (Version 2)
Quarter: 2013Q4

REPORT INFORMATION
  Report Type: Spontaneous
  Country: DE (occurrence: DE)
  Receive Date: 20130918
  Receipt Date: 20131002
  Transmission Date: 20140711
  Serious: Yes (Hospitalization, Other)
  Sender: FDA-Public Use
  Company Number: DE-ROCHE-1274049

PATIENT
  Age: 66 Year
  Sex: Female
  Weight: 61 kg

DRUGS (2)
  1. ZELBORAF [Suspect]
     Indication: METASTATIC MALIGNANT MELANOMA
     Route: 048
     Dates: start: 20130816, end: 20130909
  2. ZELBORAF [Suspect]
     Route: 048
     Dates: start: 201308

REACTIONS (10)
  - Suicide attempt [Unknown]
  - Overdose [Unknown]
  - Photosensitivity reaction [Recovering/Resolving]
  - Pruritus [Recovering/Resolving]
  - Burning sensation [Recovering/Resolving]
  - Lichen spinulosus [Recovering/Resolving]
  - Burning sensation [Recovering/Resolving]
  - Photosensitivity reaction [Recovering/Resolving]
  - Photodermatosis [Recovering/Resolving]
  - Hyperkeratosis [Recovering/Resolving]
